FAERS Safety Report 18248948 (Version 1)
Quarter: 2020Q3

REPORT INFORMATION
  Report Type: Spontaneous
  Country: US (occurrence: US)
  Receive Date: 20200909
  Receipt Date: 20200909
  Transmission Date: 20201103
  Serious: No
  Sender: FDA-Public Use
  Company Number: US-PERRIGO-20US011629

PATIENT
  Sex: Female
  Weight: 46.71 kg

DRUGS (3)
  1. ALBUTEROL SULFATE. [Suspect]
     Active Substance: ALBUTEROL SULFATE
     Dosage: UNKNOWN OR 180 MCG, EVERY 4 TO 6 HOURS, PRN
     Route: 055
     Dates: start: 2020, end: 2020
  2. ALBUTEROL SULFATE. [Suspect]
     Active Substance: ALBUTEROL SULFATE
     Indication: EMPHYSEMA
     Dosage: UNKNOWN OR 180 MCG, EVERY 4 TO 6 HOURS, PRN
     Route: 055
     Dates: start: 2020, end: 2020
  3. ALBUTEROL SULFATE. [Suspect]
     Active Substance: ALBUTEROL SULFATE
     Dosage: UNKNOWN OR 180 MCG, EVERY 4 TO 6 HOURS, PRN
     Route: 055
     Dates: start: 2020, end: 2020

REACTIONS (3)
  - Underdose [Recovered/Resolved]
  - Drug ineffective [Unknown]
  - Device delivery system issue [Recovered/Resolved]

NARRATIVE: CASE EVENT DATE: 2020
